FAERS Safety Report 8762847 (Version 2)
Quarter: 2012Q4

REPORT INFORMATION
  Report Type: 
  Country: US (occurrence: US)
  Receive Date: 20120829
  Receipt Date: 20120918
  Transmission Date: 20130627
  Serious: Yes (Other)
  Sender: FDA-Public Use
  Company Number: US-PFIZER INC-2012194499

PATIENT
  Age: 96 Year
  Sex: Female
  Weight: 46.26 kg

DRUGS (13)
  1. ZYVOX [Suspect]
     Indication: ENTEROCOCCAL BACTERAEMIA
     Dosage: 600 mg, 2x/day
     Route: 048
     Dates: start: 20120711, end: 20120803
  2. ASPIRIN [Concomitant]
     Dosage: 81 mg, UNK
  3. INSULIN [Concomitant]
     Dosage: UNK
  4. CALCIUM/VITAMIN D [Concomitant]
     Dosage: UNK
  5. FOLIC ACID [Concomitant]
     Dosage: 0.4 mg, 1x/day
  6. LASIX [Concomitant]
     Dosage: 40 mg, UNK
  7. METOPROLOL [Concomitant]
     Dosage: 50 mg, 1x/day
  8. POTASSIUM [Concomitant]
     Dosage: 10 mEq, 1x/day
  9. VALSARTAN [Concomitant]
     Dosage: 80 mg, 1x/day
  10. CO-Q-10 [Concomitant]
     Dosage: 100 mg, 2x/day
  11. HUMULIN [Concomitant]
     Dosage: 70/303 units, 2x/day
  12. LIDODERM [Concomitant]
     Dosage: 700 mg, 1x/day
  13. MULTIVITAMINS [Concomitant]
     Dosage: UNK, 1x/day

REACTIONS (1)
  - Thrombocytopenia [Recovered/Resolved]
